FAERS Safety Report 7057223-5 (Version None)
Quarter: 2010Q4

REPORT INFORMATION
  Report Type: 
  Country: None (occurrence: None)
  Receive Date: 20101022
  Receipt Date: 20101018
  Transmission Date: 20110411
  Serious: Yes (Life-Threatening)
  Sender: FDA-Public Use
  Company Number: JP-BAYER-201014647BYL

PATIENT
  Age: 55 Year
  Sex: Male

DRUGS (9)
  1. NEXAVAR [Suspect]
     Indication: HEPATIC NEOPLASM MALIGNANT
     Dosage: TOTAL DAILY DOSE: 800 MG  UNIT DOSE: 200 MG
     Route: 048
     Dates: start: 20100817, end: 20100831
  2. NEXAVAR [Suspect]
     Dosage: UNIT DOSE: 200 MG
     Route: 048
     Dates: start: 20100901, end: 20100909
  3. CONCENTRATED RED CELLS [Concomitant]
     Dosage: 4 UNITS
     Route: 042
     Dates: start: 20100910, end: 20100910
  4. CONCENTRATED RED CELLS [Concomitant]
     Dosage: 2 UNITS
     Route: 042
     Dates: start: 20100911, end: 20100911
  5. TAKEPRON [Concomitant]
     Indication: OESOPHAGEAL VARICES HAEMORRHAGE
     Dosage: UNIT DOSE: 15 MG
     Route: 048
     Dates: start: 20100701, end: 20100909
  6. NAIXAN [Concomitant]
     Indication: TUMOUR ASSOCIATED FEVER
     Dosage: UNIT DOSE: 100 MG
     Route: 048
     Dates: start: 20100610, end: 20100909
  7. LASIX [Concomitant]
     Indication: ASCITES
     Dosage: UNIT DOSE: 20 MG
     Route: 048
     Dates: start: 20100610, end: 20100909
  8. CISPLATIN [Concomitant]
     Dosage: TOTAL DAILY DOSE: 20 MG  UNIT DOSE: 10 MG
     Route: 013
     Dates: start: 20100608, end: 20100803
  9. FLUOROURACIL [Concomitant]
     Dosage: TOTAL DAILY DOSE: 250 MG  UNIT DOSE: 250 MG
     Route: 013
     Dates: start: 20100608, end: 20100803

REACTIONS (1)
  - OESOPHAGEAL VARICES HAEMORRHAGE [None]
